FAERS Safety Report 8883427 (Version 1)
Quarter: 2012Q4

REPORT INFORMATION
  Report Type: 
  Country: GB (occurrence: GB)
  Receive Date: 20121102
  Receipt Date: 20121102
  Transmission Date: 20130627
  Serious: Yes (Other)
  Sender: FDA-Public Use
  Company Number: GB-TARO-2012P1061690

PATIENT
  Age: 68 Year
  Sex: Female

DRUGS (6)
  1. WARFARIN SODIUM [Suspect]
     Dates: start: 20080727
  2. MULTAQ [Suspect]
     Dates: start: 20120712
  3. AMITRIPTYLINE [Concomitant]
  4. ATENOLOL [Concomitant]
  5. DIAZEPAM [Concomitant]
  6. RAMIPRIL [Concomitant]
     Dates: end: 21020914

REACTIONS (3)
  - Drug interaction [Unknown]
  - International normalised ratio increased [Not Recovered/Not Resolved]
  - Blood pressure decreased [Unknown]
